FAERS Safety Report 5528412-3 (Version None)
Quarter: 2007Q4

REPORT INFORMATION
  Report Type: 
  Country: None (occurrence: None)
  Receive Date: 20071123
  Receipt Date: 20071115
  Transmission Date: 20080405
  Serious: Yes (Hospitalization)
  Sender: FDA-Public Use
  Company Number: 2007-05134

PATIENT
  Age: 19 Year
  Sex: Female

DRUGS (5)
  1. CITALOPRAM HYDROBROMIDE [Suspect]
     Indication: ANXIETY
     Dosage: 10 MG, DAILY X 4 DAYS, ORAL
     Route: 048
  2. DIAZEPAM [Concomitant]
  3. NONSTEROIDAL ANTIINFLAMMATORY DRUGS [Concomitant]
  4. ACETAMINOPHEN [Concomitant]
  5. CAFFEINE [Concomitant]

REACTIONS (7)
  - DIZZINESS [None]
  - HEMIANOPIA [None]
  - MIGRAINE WITH AURA [None]
  - NAUSEA [None]
  - PHONOPHOBIA [None]
  - PHOTOPHOBIA [None]
  - VOMITING [None]
